FAERS Safety Report 16912319 (Version 1)
Quarter: 2019Q4

REPORT INFORMATION
  Report Type: Spontaneous
  Country: JP (occurrence: JP)
  Receive Date: 20191014
  Receipt Date: 20191014
  Transmission Date: 20200122
  Serious: Yes (Hospitalization, Other)
  Sender: FDA-Public Use
  Company Number: JP-TEVA-2019-JP-1121807

PATIENT
  Age: 18 Year
  Sex: Male
  Weight: 61 kg

DRUGS (4)
  1. METHOTREXATE. [Suspect]
     Active Substance: METHOTREXATE
     Indication: OSTEOSARCOMA
     Dosage: CUMULATIVE DOSE: 96 G/M2
     Route: 065
  2. DOXORUBICIN [Suspect]
     Active Substance: DOXORUBICIN
     Indication: OSTEOSARCOMA
     Dosage: CUMULATIVE DOSE: 120 MG/M2
     Route: 065
  3. CISPLATIN. [Suspect]
     Active Substance: CISPLATIN
     Indication: OSTEOSARCOMA
     Dosage: CUMULATIVE DOSE: 480 MG/M2
     Route: 065
  4. IFOSFAMIDE. [Suspect]
     Active Substance: IFOSFAMIDE
     Indication: OSTEOSARCOMA
     Dosage: CUMULATIVE DOSE: 81 G/M2
     Route: 065

REACTIONS (3)
  - Thrombotic microangiopathy [Unknown]
  - Renal tubular injury [Unknown]
  - Fanconi syndrome [Unknown]
